FAERS Safety Report 18616940 (Version 6)
Quarter: 2021Q3

REPORT INFORMATION
  Report Type: Report from Study
  Country: US (occurrence: US)
  Receive Date: 20201215
  Receipt Date: 20210709
  Transmission Date: 20211014
  Serious: No
  Sender: FDA-Public Use
  Company Number: NVSC2020US331828

PATIENT
  Sex: Female

DRUGS (1)
  1. KISQALI [Suspect]
     Active Substance: RIBOCICLIB
     Indication: PRODUCT USED FOR UNKNOWN INDICATION
     Dosage: UNK
     Route: 048

REACTIONS (6)
  - Nausea [Unknown]
  - Nasopharyngitis [Unknown]
  - Pain [Unknown]
  - Diarrhoea [Unknown]
  - Adverse drug reaction [Unknown]
  - Product supply issue [Unknown]
